FAERS Safety Report 13162125 (Version 2)
Quarter: 2017Q2

REPORT INFORMATION
  Report Type: Spontaneous
  Country: US (occurrence: US)
  Receive Date: 20170130
  Receipt Date: 20170428
  Transmission Date: 20170830
  Serious: No
  Sender: FDA-Public Use
  Company Number: US-PFIZER INC-2017036986

PATIENT
  Age: 58 Year
  Sex: Female

DRUGS (1)
  1. IBRANCE [Suspect]
     Active Substance: PALBOCICLIB
     Dosage: 125 MG, CYCLIC (TAKE 1 TABLET BY MOUTH FOR 21 DAYS ON THEN 7 DAYS OFF)
     Route: 048

REACTIONS (4)
  - Alopecia [Unknown]
  - Rash [Unknown]
  - Hair texture abnormal [Unknown]
  - Pruritus [Unknown]
